FAERS Safety Report 11740154 (Version 3)
Quarter: 2016Q1

REPORT INFORMATION
  Report Type: Report from Study
  Country: JP (occurrence: JP)
  Receive Date: 20151113
  Receipt Date: 20160228
  Transmission Date: 20160525
  Serious: Yes (Death, Hospitalization, Other)
  Sender: FDA-Public Use
  Company Number: JP-BRISTOL-MYERS SQUIBB COMPANY-BMS-2015-065692

PATIENT
  Age: 65 Year
  Sex: Male

DRUGS (3)
  1. NIVOLUMAB [Suspect]
     Active Substance: NIVOLUMAB
     Dosage: UNK
     Route: 041
     Dates: start: 20151015, end: 20151015
  2. NIVOLUMAB [Suspect]
     Active Substance: NIVOLUMAB
     Dosage: 138 MG, UNK
     Route: 041
     Dates: start: 20150924, end: 20150924
  3. NIVOLUMAB [Suspect]
     Active Substance: NIVOLUMAB
     Indication: MALIGNANT MELANOMA
     Dosage: 138 MG, QD
     Route: 041
     Dates: start: 20150903, end: 20150903

REACTIONS (7)
  - Abdominal distension [Not Recovered/Not Resolved]
  - Cardiac failure [Fatal]
  - Interstitial lung disease [Recovered/Resolved]
  - Haemorrhage [Not Recovered/Not Resolved]
  - Cough [Unknown]
  - Drug eruption [Unknown]
  - Rash [Recovered/Resolved]

NARRATIVE: CASE EVENT DATE: 20150904
